FAERS Safety Report 23417292 (Version 1)
Quarter: 2024Q1

REPORT INFORMATION
  Report Type: Spontaneous
  Country: US (occurrence: None)
  Receive Date: 20240117
  Receipt Date: 20240117
  Transmission Date: 20240410
  Serious: Yes (Hospitalization)
  Sender: FDA-Public Use
  Company Number: None

PATIENT

DRUGS (1)
  1. LOKELMA [Suspect]
     Active Substance: SODIUM ZIRCONIUM CYCLOSILICATE
     Route: 048

REACTIONS (7)
  - Gastrointestinal haemorrhage [None]
  - Laboratory test interference [None]
  - Contraindicated product administered [None]
  - Product residue present [None]
  - Physical product label issue [None]
  - Drug monitoring procedure not performed [None]
  - Drug therapeutic incompatibility [None]
